FAERS Safety Report 14619818 (Version 1)
Quarter: 2018Q1

REPORT INFORMATION
  Report Type: Spontaneous
  Country: US (occurrence: US)
  Receive Date: 20180309
  Receipt Date: 20180309
  Transmission Date: 20180509
  Serious: Yes (Other)
  Sender: FDA-Public Use
  Company Number: PHHY2018US036602

PATIENT
  Age: 70 Year
  Sex: Male

DRUGS (4)
  1. THIAMAZOLE [Suspect]
     Active Substance: METHIMAZOLE
     Indication: HYPERTHYROIDISM
     Dosage: UNK
     Route: 065
  2. IODINE SOLUTION [Concomitant]
     Indication: THYROTOXIC CRISIS
     Dosage: HIGH DOSE
     Route: 065
  3. PROPYLTHIOURACIL. [Concomitant]
     Active Substance: PROPYLTHIOURACIL
     Indication: THYROTOXIC CRISIS
     Route: 065
  4. HYDROCORTISONE. [Concomitant]
     Active Substance: HYDROCORTISONE
     Indication: PRODUCT USED FOR UNKNOWN INDICATION

REACTIONS (7)
  - Atrial fibrillation [Unknown]
  - Hypotension [Unknown]
  - Hepatic function abnormal [Unknown]
  - Myocardial infarction [Unknown]
  - Hepatotoxicity [Unknown]
  - Tachycardia [Unknown]
  - Ventricular fibrillation [Unknown]
